FAERS Safety Report 16321904 (Version 1)
Quarter: 2019Q2

REPORT INFORMATION
  Report Type: Spontaneous
  Country: US (occurrence: US)
  Receive Date: 20190516
  Receipt Date: 20190516
  Transmission Date: 20190711
  Serious: Yes (Death, Other)
  Sender: FDA-Public Use
  Company Number: US-FRESENIUS KABI-FK201905510

PATIENT
  Age: 50 Year
  Sex: Female

DRUGS (5)
  1. BRINCIDOFOVIR [Suspect]
     Active Substance: BRINCIDOFOVIR
     Indication: CYTOMEGALOVIRUS INFECTION
     Route: 065
  2. GANCICLOVIR FOR INJECTION (MANUFACTURER UNKNOWN) [Suspect]
     Active Substance: GANCICLOVIR
     Indication: CYTOMEGALOVIRUS INFECTION
     Route: 065
  3. BRINCIDOFOVIR [Suspect]
     Active Substance: BRINCIDOFOVIR
     Route: 065
  4. FOSCARNET [Suspect]
     Active Substance: FOSCARNET
     Indication: CYTOMEGALOVIRUS INFECTION
     Route: 065
  5. FOSCARNET [Suspect]
     Active Substance: FOSCARNET
     Route: 065

REACTIONS (4)
  - Cytomegalovirus gastrointestinal infection [Fatal]
  - Drug resistance [Not Recovered/Not Resolved]
  - Septic shock [Fatal]
  - Gastrointestinal haemorrhage [Fatal]
